FAERS Safety Report 14232159 (Version 2)
Quarter: 2017Q4

REPORT INFORMATION
  Report Type: Spontaneous
  Country: US (occurrence: US)
  Receive Date: 20171128
  Receipt Date: 20171201
  Transmission Date: 20180321
  Serious: No
  Sender: FDA-Public Use
  Company Number: US-PFIZER INC-2017510723

PATIENT
  Age: 13 Year
  Sex: Female
  Weight: 45.36 kg

DRUGS (2)
  1. NALTREXONE [Concomitant]
     Active Substance: NALTREXONE
     Indication: COMPLEX REGIONAL PAIN SYNDROME
     Dosage: 3 MG, 2X/DAY
     Route: 048
     Dates: start: 201711
  2. LYRICA [Suspect]
     Active Substance: PREGABALIN
     Indication: COMPLEX REGIONAL PAIN SYNDROME
     Dosage: 50 MG, 2X/DAY
     Route: 048
     Dates: start: 20171106

REACTIONS (4)
  - Drug administered to patient of inappropriate age [Unknown]
  - Pain [Unknown]
  - Product use in unapproved indication [Unknown]
  - Drug dose omission [Unknown]

NARRATIVE: CASE EVENT DATE: 201711
